FAERS Safety Report 19705245 (Version 1)
Quarter: 2021Q3

REPORT INFORMATION
  Report Type: Spontaneous
  Country: US (occurrence: US)
  Receive Date: 20210816
  Receipt Date: 20210816
  Transmission Date: 20211014
  Serious: No
  Sender: FDA-Public Use
  Company Number: None

PATIENT
  Age: 75 Year
  Sex: Male

DRUGS (1)
  1. TAMSULOSIN [Suspect]
     Active Substance: TAMSULOSIN
     Route: 048
     Dates: start: 20210719, end: 20210811

REACTIONS (2)
  - Pain in jaw [None]
  - Toothache [None]

NARRATIVE: CASE EVENT DATE: 20210811
